FAERS Safety Report 9208711 (Version 2)
Quarter: 2013Q1

REPORT INFORMATION
  Report Type: Spontaneous
  Country: GB (occurrence: None)
  Receive Date: 20130128
  Receipt Date: 20130212
  Transmission Date: 20140127
  Serious: Yes (Death, Hospitalization)
  Sender: FDA-Public Use
  Company Number: AEGBR201300028

PATIENT
  Age: 82 Year
  Sex: Male
  Weight: 80 kg

DRUGS (12)
  1. GAMUNEX [Suspect]
     Indication: MYASTHENIA GRAVIS
     Dosage: 120  GM; 1X; IV?12/14/2012  -  12/15/2012
     Route: 042
     Dates: start: 20121214, end: 20121215
  2. PREDNISOLONE [Concomitant]
  3. AZATHIOPRINE [Concomitant]
  4. OMEPRAZOLE [Concomitant]
  5. ASPIRIN [Concomitant]
  6. ALENDRONIC ACID [Concomitant]
  7. ADCAL D3 [Concomitant]
  8. OXYBUTYNIN [Concomitant]
  9. RANITIDINE [Concomitant]
  10. BUMETANIDE [Concomitant]
  11. PYRIDOSTIGMINE [Concomitant]
  12. PROPANTHELINE [Concomitant]

REACTIONS (2)
  - Dyspnoea [None]
  - Unresponsive to stimuli [None]
